FAERS Safety Report 15238165 (Version 1)
Quarter: 2018Q3

REPORT INFORMATION
  Report Type: Spontaneous
  Country: BR (occurrence: BR)
  Receive Date: 20180803
  Receipt Date: 20180803
  Transmission Date: 20181010
  Serious: Yes (Hospitalization, Other)
  Sender: FDA-Public Use
  Company Number: BR-SANIK-2018SA178762AA

PATIENT
  Age: 3 Year
  Sex: Female
  Weight: 17.5 kg

DRUGS (2)
  1. ALLEGRA [Suspect]
     Active Substance: FEXOFENADINE HYDROCHLORIDE
     Indication: NASAL CONGESTION
     Dosage: UNK, BID
     Route: 048
     Dates: start: 20180622, end: 20180625
  2. AMOXICILLIN. [Suspect]
     Active Substance: AMOXICILLIN
     Indication: OTITIS EXTERNA BACTERIAL
     Dosage: UNK UNK, BID
     Route: 048
     Dates: start: 20180622

REACTIONS (3)
  - Pallor [Recovered/Resolved]
  - Hospitalisation [Unknown]
  - Hypothermia [Recovered/Resolved]

NARRATIVE: CASE EVENT DATE: 20180625
